FAERS Safety Report 9330671 (Version 2)
Quarter: 2013Q3

REPORT INFORMATION
  Report Type: Spontaneous
  Country: FR (occurrence: FR)
  Receive Date: 20130605
  Receipt Date: 20130923
  Transmission Date: 20140515
  Serious: Yes (Hospitalization)
  Sender: FDA-Public Use
  Company Number: FR-ROCHE-1232170

PATIENT
  Age: 15 Year
  Sex: Female

DRUGS (6)
  1. APRANAX [Suspect]
     Indication: JUVENILE IDIOPATHIC ARTHRITIS
     Route: 048
     Dates: start: 201303, end: 20130415
  2. METHOTREXATE [Suspect]
     Indication: JUVENILE IDIOPATHIC ARTHRITIS
     Route: 048
     Dates: start: 20130320, end: 20130414
  3. SPECIAFOLDINE [Suspect]
     Indication: PRODUCT USED FOR UNKNOWN INDICATION
     Route: 048
     Dates: start: 20130320, end: 20130414
  4. CORTANCYL [Concomitant]
     Indication: JUVENILE IDIOPATHIC ARTHRITIS
     Route: 048
     Dates: start: 2010, end: 20130415
  5. SOLU-MEDROL [Concomitant]
  6. KINERET [Concomitant]

REACTIONS (1)
  - Histiocytosis haematophagic [Recovered/Resolved]
